FAERS Safety Report 4798094-7 (Version None)
Quarter: 2005Q4

REPORT INFORMATION
  Report Type: 
  Country: None (occurrence: None)
  Receive Date: 20051006
  Receipt Date: 20051006
  Transmission Date: 20060501
  Serious: No
  Sender: FDA-Public Use
  Company Number: None

PATIENT
  Age: 44 Year
  Sex: Female
  Weight: 51 kg

DRUGS (6)
  1. TYLENOL (CAPLET) [Suspect]
     Indication: SUICIDE ATTEMPT
     Dates: start: 20040616
  2. TRAZODONE HCL [Concomitant]
  3. IBUPROFEN [Concomitant]
  4. ALBUTEROL [Concomitant]
  5. PERCOCET [Concomitant]
  6. NEURONTIN [Concomitant]

REACTIONS (5)
  - ALANINE AMINOTRANSFERASE INCREASED [None]
  - ASPARTATE AMINOTRANSFERASE INCREASED [None]
  - LOSS OF CONSCIOUSNESS [None]
  - OVERDOSE [None]
  - SUICIDE ATTEMPT [None]
